FAERS Safety Report 23676118 (Version 1)
Quarter: 2024Q1

REPORT INFORMATION
  Report Type: Spontaneous
  Country: US (occurrence: US)
  Receive Date: 20240327
  Receipt Date: 20240327
  Transmission Date: 20240409
  Serious: No
  Sender: FDA-Public Use
  Company Number: US-002147023-NVSC2023US193936

PATIENT
  Sex: Male
  Weight: 142.88 kg

DRUGS (4)
  1. COSENTYX [Suspect]
     Active Substance: SECUKINUMAB
     Indication: Psoriasis
     Dosage: UNK (USE FOR TWO YEARS) ROUTE OF ADMIN (FREE TEXT): INJECTION NOT OTHERWISE SPECIFIED
     Route: 065
     Dates: end: 202302
  2. DESONIDE [Suspect]
     Active Substance: DESONIDE
     Indication: Psoriasis
     Dosage: UNK (ON THE FACE AND GENITAL AREA AS NEEDED)
     Route: 065
  3. HYDROCORTISONE [Suspect]
     Active Substance: HYDROCORTISONE
     Indication: Psoriasis
     Dosage: UNK (ON BODY AS NEEDED)
     Route: 065
  4. METHOTREXATE [Suspect]
     Active Substance: METHOTREXATE
     Indication: Psoriasis
     Dosage: UNK (X2 YEARS)
     Route: 065

REACTIONS (5)
  - Skin plaque [Unknown]
  - Arthralgia [Unknown]
  - Drug ineffective [Unknown]
  - Erythema [Unknown]
  - Skin exfoliation [Unknown]
